FAERS Safety Report 25610017 (Version 1)
Quarter: 2025Q3

REPORT INFORMATION
  Report Type: Report from Study
  Country: CA (occurrence: CA)
  Receive Date: 20250728
  Receipt Date: 20250728
  Transmission Date: 20251021
  Serious: Yes (Other)
  Sender: TAKEDA
  Company Number: CA-TAKEDA-2025TUS031946

PATIENT
  Age: 63 Year
  Sex: Female
  Weight: 62.5 kg

DRUGS (9)
  1. VEDOLIZUMAB [Suspect]
     Active Substance: VEDOLIZUMAB
     Indication: Crohn^s disease
  2. VEDOLIZUMAB [Suspect]
     Active Substance: VEDOLIZUMAB
     Dates: start: 20250408, end: 20250603
  3. VEDOLIZUMAB [Suspect]
     Active Substance: VEDOLIZUMAB
     Indication: Crohn^s disease
     Dosage: 108 MILLIGRAM, Q2WEEKS
     Dates: start: 20250114
  4. ROSUVASTATIN [Concomitant]
     Active Substance: ROSUVASTATIN
  5. ATORVASTATIN [Concomitant]
     Active Substance: ATORVASTATIN
  6. EZETIMIBE [Concomitant]
     Active Substance: EZETIMIBE
     Indication: Dyslipidaemia
  7. CRESTOR [Concomitant]
     Active Substance: ROSUVASTATIN CALCIUM
     Indication: Dyslipidaemia
  8. PANTOPRAZOLE SODIUM [Concomitant]
     Active Substance: PANTOPRAZOLE SODIUM
     Indication: Orthosis user
  9. Loraday [Concomitant]
     Indication: Constipation

REACTIONS (15)
  - Crohn^s disease [Unknown]
  - Burning sensation [Recovered/Resolved]
  - Urticaria [Recovered/Resolved]
  - Pyrexia [Recovered/Resolved]
  - Erythema [Recovered/Resolved]
  - Oedema [Recovered/Resolved]
  - Injection site reaction [Recovered/Resolved]
  - Pruritus [Recovered/Resolved]
  - Injection site rash [Unknown]
  - Injection site swelling [Unknown]
  - Poor venous access [Recovered/Resolved]
  - Blood pressure increased [Unknown]
  - Localised infection [Unknown]
  - Injection site erythema [Unknown]
  - Injection site oedema [Unknown]

NARRATIVE: CASE EVENT DATE: 20250703
